APPROVED DRUG PRODUCT: LORCET-HD
Active Ingredient: ACETAMINOPHEN; HYDROCODONE BITARTRATE
Strength: 500MG;5MG
Dosage Form/Route: CAPSULE;ORAL
Application: A087336 | Product #001
Applicant: MALLINCKRODT CHEMICAL INC
Approved: Jul 8, 1982 | RLD: No | RS: No | Type: DISCN